FAERS Safety Report 5533121-0 (Version None)
Quarter: 2007Q4

REPORT INFORMATION
  Report Type: 
  Country: None (occurrence: None)
  Receive Date: 20071204
  Receipt Date: 20071126
  Transmission Date: 20080405
  Serious: Yes (Disabling)
  Sender: FDA-Public Use
  Company Number: BR-AVENTIS-200720963GDDC

PATIENT
  Age: 52 Year
  Sex: Female
  Weight: 70 kg

DRUGS (1)
  1. LANTUS [Suspect]
     Route: 058
     Dates: start: 20071001

REACTIONS (4)
  - DYSPEPSIA [None]
  - NAUSEA [None]
  - TACHYCARDIA [None]
  - VOMITING [None]
